FAERS Safety Report 9026551 (Version 2)
Quarter: 2013Q1

REPORT INFORMATION
  Report Type: Spontaneous
  Country: US (occurrence: None)
  Receive Date: 20130107
  Receipt Date: 20130214
  Transmission Date: 20140127
  Serious: Yes (Hospitalization)
  Sender: FDA-Public Use
  Company Number: US-JNJFOC-20130100121

PATIENT
  Age: 66 Year
  Sex: Male
  Weight: 77.5 kg

DRUGS (1)
  1. DECITABINE (DECITABINE) LYOPHILIZED POWDER [Suspect]
     Indication: ACUTE MYELOID LEUKAEMIA
     Dosage: 1 IN 28 DAY
     Route: 042
     Dates: start: 20120828

REACTIONS (17)
  - Lung infection [None]
  - Febrile neutropenia [None]
  - Pneumonia staphylococcal [None]
  - Pneumonia fungal [None]
  - Aspergillus test positive [None]
  - Confusional state [None]
  - Aspartate aminotransferase increased [None]
  - Alanine aminotransferase increased [None]
  - Hypophagia [None]
  - Urine output decreased [None]
  - Chromaturia [None]
  - Asthenia [None]
  - Abasia [None]
  - Pallor [None]
  - Heart rate increased [None]
  - Blood potassium increased [None]
  - Pneumonia [None]
